FAERS Safety Report 10667805 (Version 1)
Quarter: 2014Q4

REPORT INFORMATION
  Report Type: Spontaneous
  Country: DE (occurrence: DE)
  Receive Date: 20141222
  Receipt Date: 20141222
  Transmission Date: 20150529
  Serious: Yes (Other)
  Sender: FDA-Public Use
  Company Number: DE-TEVA-529612GER

PATIENT
  Sex: Female

DRUGS (1)
  1. COPAXONE [Suspect]
     Active Substance: GLATIRAMER ACETATE

REACTIONS (5)
  - Headache [Unknown]
  - Conduction disorder [Unknown]
  - Multiple sclerosis relapse [Unknown]
  - Neoplasm malignant [Unknown]
  - Motor dysfunction [Unknown]

NARRATIVE: CASE EVENT DATE: 2008
